FAERS Safety Report 8671389 (Version 3)
Quarter: 2012Q4

REPORT INFORMATION
  Report Type: 
  Country: GB (occurrence: GB)
  Receive Date: 20120718
  Receipt Date: 20121008
  Transmission Date: 20130627
  Serious: Yes (Other)
  Sender: FDA-Public Use
  Company Number: GB-VIIV HEALTHCARE LIMITED-A0978627B

PATIENT
  Age: 29 Year
  Sex: Female

DRUGS (3)
  1. EPZICOM [Suspect]
     Indication: HIV INFECTION
     Dosage: 1TAB per day
     Route: 048
     Dates: start: 20101213
  2. VIRAMUNE [Suspect]
     Indication: HIV INFECTION
     Dosage: 400MGD per day
     Route: 048
     Dates: start: 20101213
  3. FOLATE [Concomitant]
     Indication: SUPPLEMENTATION THERAPY

REACTIONS (3)
  - Abortion induced [Unknown]
  - Exposure during pregnancy [Unknown]
  - Pregnancy [None]
